FAERS Safety Report 8759982 (Version 3)
Quarter: 2012Q4

REPORT INFORMATION
  Report Type: 
  Country: US (occurrence: US)
  Receive Date: 20120829
  Receipt Date: 20120928
  Transmission Date: 20130627
  Serious: Yes (Death, Hospitalization, Other)
  Sender: FDA-Public Use
  Company Number: US-COVIDIEN/TYCO HEALTHCARE/MALLINCKRODT-T201203248

PATIENT
  Age: 61 None
  Sex: Female
  Weight: 72.56 kg

DRUGS (39)
  1. EXALGO EXTENDED RELEASE [Suspect]
     Indication: FIBROMYALGIA
     Dosage: 16 mg, every 12 hours
     Route: 048
     Dates: start: 2011, end: 20120520
  2. EXALGO EXTENDED RELEASE [Suspect]
     Indication: OSTEOARTHRITIS
  3. DURAGESIC [Suspect]
     Indication: PAIN
     Dosage: 50 ug/hr, every 48 hours
     Route: 062
     Dates: end: 20120520
  4. DURAGESIC [Suspect]
     Dosage: 100 ug/hr, q 48 hours
     Route: 062
     Dates: end: 20120520
  5. COUMADIN                           /00014802/ [Concomitant]
     Indication: HEART VALVE REPLACEMENT
     Dosage: 7.5 mg, Mon, Wed, Fri, Sun
     Route: 048
     Dates: start: 2000, end: 201205
  6. COUMADIN                           /00014802/ [Concomitant]
     Dosage: 10 mg, Tues, Thurs, Sat
  7. CRESTOR [Concomitant]
     Indication: BLOOD CHOLESTEROL
     Dosage: 20 mg, qd/qhs
  8. FIORICET [Concomitant]
     Indication: HEADACHE
     Dosage: 1 tab, qd/prn
     Route: 048
     Dates: start: 201111, end: 201205
  9. FLEXERIL                           /00428402/ [Concomitant]
     Indication: MUSCLE SPASMS
     Dosage: 10 mg, q 8 hours, prn
     Route: 048
  10. PHENERGAN                          /00033001/ [Concomitant]
     Dosage: 25 mg, q 6 hours,prn
  11. NUCYNTA [Concomitant]
     Indication: PAIN
     Dosage: 50 mg, q 12 hours
     Route: 048
     Dates: end: 201204
  12. ZETIA [Concomitant]
     Indication: CARDIAC DISORDER
     Dosage: 10 mg, qd
     Dates: end: 201205
  13. FOLIC ACID [Concomitant]
     Dosage: 1 mg, qd
  14. LASIX                              /00032601/ [Concomitant]
     Dosage: 20 mg, qd
  15. LEVOTHYROXIN [Concomitant]
     Dosage: 50 mcq, qd
  16. PROTONIX [Concomitant]
     Dosage: 40 mg, qd
  17. LUNESTA [Concomitant]
     Dosage: 3 mg, qd/qhs
  18. ALLEGRA [Concomitant]
     Dosage: 180 mg, prn
  19. ASTEPRO [Concomitant]
     Dosage: 0.15%, 2 sprays/nostril, bid
     Route: 045
  20. B COMPLEX WITH VITAMIN C           /02146701/ [Concomitant]
     Dosage: UNK, qd, w/meal
  21. CALCIUM +D                         /00188401/ [Concomitant]
     Dosage: 1 tab, bid w/meal
  22. CYMBALTA [Concomitant]
     Dosage: 90 mg, qd
  23. DULCOLAX                           /00064401/ [Concomitant]
     Dosage: 5 mg, prn
  24. DULCOLAX                           /00064401/ [Concomitant]
     Dosage: 1 suppository, prn
     Route: 054
  25. FLONASE [Concomitant]
     Dosage: 2 sprays, qd
     Route: 045
  26. FLONASE [Concomitant]
     Dosage: 50 mcg, 1-2 sprays/nostril
     Route: 045
  27. GOLDEN ALOE [Concomitant]
     Dosage: 1 cap, tid, w/meal
  28. KLOR-CON [Concomitant]
     Dosage: 8 mEq, qd
  29. LOVENOX [Concomitant]
     Dosage: 80 mg, prn
  30. METOPROLOL TARTRATE [Concomitant]
     Dosage: 12.5 mg, bid
  31. MAALOX                             /00082501/ [Concomitant]
     Indication: DYSPEPSIA
     Dosage: UNK, prn
  32. MSM [Concomitant]
     Dosage: 1000 mg, 3 tabs qd w/meals
  33. RAMIPRIL [Concomitant]
     Dosage: 10 mg, qd
  34. SENNA-S                            /01035001/ [Concomitant]
     Dosage: 4 tabs, bid
  35. SINGULAIR [Concomitant]
     Dosage: 10 mg, qd
  36. SLOW FE [Concomitant]
     Dosage: 47.5 mg, qd
  37. SWEET SLUMBER [Concomitant]
     Dosage: UNK, w/meal
  38. TRIGOSAMINE [Concomitant]
     Dosage: 3 tab, qd
  39. ZEGERID                            /00661201/ [Concomitant]
     Dosage: UNK

REACTIONS (11)
  - Grand mal convulsion [Fatal]
  - Cardiac arrest [Fatal]
  - Hypoxic-ischaemic encephalopathy [Fatal]
  - Respiratory failure [Fatal]
  - Cardiac failure [Unknown]
  - Migraine [Recovered/Resolved]
  - Withdrawal syndrome [Unknown]
  - Pain [Unknown]
  - Drug dose omission [None]
  - Intentional drug misuse [None]
  - Unresponsive to stimuli [None]
